FAERS Safety Report 7035969-2 (Version None)
Quarter: 2010Q4

REPORT INFORMATION
  Report Type: 
  Country: None (occurrence: None)
  Receive Date: 20101008
  Receipt Date: 20100923
  Transmission Date: 20110411
  Serious: Yes (Other)
  Sender: FDA-Public Use
  Company Number: IN-GENENTECH-307287

PATIENT
  Age: 8 Year
  Sex: Male

DRUGS (3)
  1. XOLAIR [Suspect]
     Indication: ASTHMA
     Dosage: UNK
  2. SALMETEROL [Concomitant]
     Indication: PRODUCT USED FOR UNKNOWN INDICATION
  3. FLUTICASONE PROPIONATE [Concomitant]
     Indication: PRODUCT USED FOR UNKNOWN INDICATION

REACTIONS (1)
  - ASTHMA [None]
